FAERS Safety Report 24687622 (Version 1)
Quarter: 2024Q4

REPORT INFORMATION
  Report Type: Spontaneous
  Country: FR (occurrence: FR)
  Receive Date: 20241202
  Receipt Date: 20241202
  Transmission Date: 20250115
  Serious: Yes (Other)
  Sender: MYLAN
  Company Number: FR-MYLANLABS-2024M1106733

PATIENT
  Sex: Female

DRUGS (1)
  1. SERTRALINE HYDROCHLORIDE [Suspect]
     Active Substance: SERTRALINE HYDROCHLORIDE
     Indication: Depression
     Dosage: UNK
     Route: 065
     Dates: start: 20241029, end: 20241031

REACTIONS (11)
  - Depression [Recovered/Resolved]
  - Dyspnoea [Recovered/Resolved]
  - Chills [Recovered/Resolved]
  - Vertigo [Not Recovered/Not Resolved]
  - Vulvovaginal dryness [Recovered/Resolved]
  - Sensory disturbance [Not Recovered/Not Resolved]
  - Abdominal pain [Recovered/Resolved]
  - Blood cholesterol increased [Recovered/Resolved]
  - Incontinence [Not Recovered/Not Resolved]
  - Dizziness [Recovered/Resolved]
  - Diarrhoea [Recovered/Resolved]
